FAERS Safety Report 7094332-9 (Version None)
Quarter: 2010Q4

REPORT INFORMATION
  Report Type: 
  Country: None (occurrence: None)
  Receive Date: 20101102
  Receipt Date: 20101021
  Transmission Date: 20110411
  Serious: Yes (Other)
  Sender: FDA-Public Use
  Company Number: POMP-1000533

PATIENT
  Age: 19 Month
  Sex: Male

DRUGS (1)
  1. MYOZYME [Suspect]
     Indication: GLYCOGEN STORAGE DISEASE TYPE II
     Dosage: 20 MG/KG, Q2W, INTRAVENOUS
     Route: 042
     Dates: start: 20080518

REACTIONS (11)
  - APNOEA [None]
  - DISEASE PROGRESSION [None]
  - DYSPHAGIA [None]
  - GENERAL PHYSICAL HEALTH DETERIORATION [None]
  - GLYCOGEN STORAGE DISEASE TYPE II [None]
  - HYPOTONIA [None]
  - MUSCULAR WEAKNESS [None]
  - PNEUMONIA ASPIRATION [None]
  - PULSE ABSENT [None]
  - THERAPEUTIC RESPONSE DECREASED [None]
  - WEIGHT DECREASED [None]
